FAERS Safety Report 24697589 (Version 2)
Quarter: 2025Q2

REPORT INFORMATION
  Report Type: Spontaneous
  Country: US (occurrence: US)
  Receive Date: 20241204
  Receipt Date: 20250428
  Transmission Date: 20250717
  Serious: Yes (Hospitalization)
  Sender: JOHNSON AND JOHNSON
  Company Number: US-JNJFOC-20241161827

PATIENT
  Age: 47 Year
  Sex: Female

DRUGS (3)
  1. SIMPONI ARIA [Suspect]
     Active Substance: GOLIMUMAB
     Indication: Psoriatic arthropathy
     Route: 041
  2. TYLENOL [Concomitant]
     Active Substance: ACETAMINOPHEN
     Dates: start: 20241122
  3. BENADRYL [Concomitant]
     Active Substance: DIPHENHYDRAMINE HYDROCHLORIDE
     Dates: start: 20241122

REACTIONS (10)
  - Headache [Unknown]
  - Chest discomfort [Unknown]
  - Erythema [Unknown]
  - Cyanosis [Unknown]
  - Throat tightness [Unknown]
  - Pruritus [Unknown]
  - Sneezing [Unknown]
  - Feeling abnormal [Unknown]
  - Infusion related reaction [Unknown]
  - Anxiety [Unknown]

NARRATIVE: CASE EVENT DATE: 20241122
